FAERS Safety Report 5523062-7 (Version None)
Quarter: 2007Q4

REPORT INFORMATION
  Report Type: 
  Country: None (occurrence: None)
  Receive Date: 20071121
  Receipt Date: 20071112
  Transmission Date: 20080405
  Serious: Yes (Other)
  Sender: FDA-Public Use
  Company Number: PHEH2007US14721

PATIENT
  Sex: Male

DRUGS (1)
  1. TEGRETOL-XR [Suspect]
     Indication: HEAD INJURY
     Dosage: 400 MG, UNK

REACTIONS (2)
  - CONVULSION [None]
  - FEELING ABNORMAL [None]
